FAERS Safety Report 25206436 (Version 2)
Quarter: 2025Q2

REPORT INFORMATION
  Report Type: Spontaneous
  Country: US (occurrence: US)
  Receive Date: 20250417
  Receipt Date: 20250501
  Transmission Date: 20250716
  Serious: Yes (Other)
  Sender: AUROBINDO
  Company Number: US-MLMSERVICE-20250326-PI457884-00285-1

PATIENT
  Age: 16 Year
  Sex: Female

DRUGS (11)
  1. RISPERIDONE [Suspect]
     Active Substance: RISPERIDONE
     Indication: Psychotic disorder
     Dosage: 1 MILLIGRAM, ONCE A DAY (NIGHTLY)
     Route: 065
     Dates: start: 2018, end: 2018
  2. RISPERIDONE [Suspect]
     Active Substance: RISPERIDONE
     Dosage: 3 MILLIGRAM, ONCE A DAY (NIGHTLY; INCREASED)
     Route: 065
     Dates: start: 2018, end: 2018
  3. OLANZAPINE [Suspect]
     Active Substance: OLANZAPINE
     Indication: Psychotic disorder
     Dosage: 5 MILLIGRAM, ONCE A DAY (NIGHTLY)
     Route: 065
     Dates: start: 2023, end: 2023
  4. OLANZAPINE [Suspect]
     Active Substance: OLANZAPINE
     Indication: Catatonia
     Dosage: 10 MILLIGRAM, TWO TIMES A DAY
     Route: 065
     Dates: start: 2023, end: 2023
  5. OLANZAPINE [Suspect]
     Active Substance: OLANZAPINE
     Dosage: 2.5 MILLIGRAM, ONCE A DAY
     Route: 065
     Dates: start: 2020, end: 2020
  6. OLANZAPINE [Suspect]
     Active Substance: OLANZAPINE
     Dosage: 5 MILLIGRAM, ONCE A DAY (INCREASED TO 5 MG ON THE THIRD DAY)
     Route: 065
     Dates: start: 2020, end: 2020
  7. OLANZAPINE [Suspect]
     Active Substance: OLANZAPINE
     Dosage: 10 MILLIGRAM, ONCE A DAY (INCREASED TO 10 MG ON DAY 5)
     Route: 065
     Dates: start: 2020, end: 2020
  8. OLANZAPINE [Suspect]
     Active Substance: OLANZAPINE
     Dosage: 15 MILLIGRAM, ONCE A DAY (INCREASED TO 15 MG ON DAY 11)
     Route: 065
     Dates: start: 2020, end: 2020
  9. OLANZAPINE [Suspect]
     Active Substance: OLANZAPINE
     Dosage: 20 MILLIGRAM, ONCE A DAY (TITRATED TO 20 MG DAILY ON DAY 14)
     Route: 065
     Dates: start: 2020, end: 2020
  10. OLANZAPINE [Suspect]
     Active Substance: OLANZAPINE
     Dosage: 10 MILLIGRAM, ONCE A DAY (DECREASED TO 10 MG DAILY 2 WEEKS AFTER DISCHARGE)
     Route: 065
     Dates: start: 2020, end: 2020
  11. OLANZAPINE [Suspect]
     Active Substance: OLANZAPINE
     Dosage: 5 MILLIGRAM, ONCE A DAY (DECREASED TO 5 MG 2-3 MONTHS LATER AFTER DISCHARGE)
     Route: 065
     Dates: start: 2020, end: 2020

REACTIONS (6)
  - Hyperprolactinaemia [Recovered/Resolved]
  - Neutropenia [Recovered/Resolved]
  - Weight increased [Unknown]
  - Fatigue [Unknown]
  - Sedation complication [Recovering/Resolving]
  - Menstruation irregular [Recovered/Resolved]

NARRATIVE: CASE EVENT DATE: 20180101
